FAERS Safety Report 9049574 (Version 1)
Quarter: 2013Q1

REPORT INFORMATION
  Report Type: Report from Study
  Country: US (occurrence: US)
  Receive Date: 20130205
  Receipt Date: 20130205
  Transmission Date: 20140127
  Serious: Yes (Other)
  Sender: FDA-Public Use
  Company Number: US-ACTELION-A-US2009-26435

PATIENT
  Age: 63 Year
  Sex: Female

DRUGS (5)
  1. TRACLEER [Suspect]
     Indication: PULMONARY ARTERIAL HYPERTENSION
     Dosage: UNK
     Route: 048
  2. AMIODARONE [Concomitant]
  3. OXYGEN [Concomitant]
  4. REVATIO [Concomitant]
     Dosage: UNK
  5. VIAGRA [Concomitant]
     Dosage: 100 MG, TID

REACTIONS (4)
  - Mycobacterium avium complex infection [Unknown]
  - Cardiac flutter [Unknown]
  - Cardiac ablation [Unknown]
  - Malaise [Unknown]
